FAERS Safety Report 6387695-0 (Version None)
Quarter: 2009Q4

REPORT INFORMATION
  Report Type: 
  Country: None (occurrence: None)
  Receive Date: 20091005
  Receipt Date: 20090929
  Transmission Date: 20100525
  Serious: Yes (Other)
  Sender: FDA-Public Use
  Company Number: US-ROCHE-659389

PATIENT
  Age: 6 Year
  Sex: Male

DRUGS (1)
  1. TAMIFLU [Suspect]
     Indication: INFLUENZA
     Route: 048
     Dates: start: 20090924, end: 20090928

REACTIONS (3)
  - EXPIRED DRUG ADMINISTERED [None]
  - PYREXIA [None]
  - VOMITING [None]
